FAERS Safety Report 6232759-5 (Version None)
Quarter: 2009Q2

REPORT INFORMATION
  Report Type: 
  Country: None (occurrence: None)
  Receive Date: 20090612
  Receipt Date: 20090612
  Transmission Date: 20091009
  Serious: Yes (Life-Threatening)
  Sender: FDA-Public Use
  Company Number: None

PATIENT
  Age: 63 Year
  Sex: Female
  Weight: 55 kg

DRUGS (4)
  1. ARICEPT [Suspect]
     Indication: DEMENTIA WITH LEWY BODIES
     Dosage: 10 MG QHS PO
     Route: 048
     Dates: start: 20090318, end: 20090323
  2. KEPPRA [Concomitant]
  3. LEXAPRO [Concomitant]
  4. LORAZEPAM [Concomitant]

REACTIONS (1)
  - BRADYCARDIA [None]
